FAERS Safety Report 6920991-4 (Version None)
Quarter: 2010Q3

REPORT INFORMATION
  Report Type: 
  Country: None (occurrence: None)
  Receive Date: 20100812
  Receipt Date: 20100804
  Transmission Date: 20110219
  Serious: Yes (Death, Other)
  Sender: FDA-Public Use
  Company Number: JP-ROCHE-715437

PATIENT
  Sex: Male
  Weight: 55 kg

DRUGS (10)
  1. AVASTIN [Suspect]
     Indication: LUNG ADENOCARCINOMA
     Route: 041
     Dates: start: 20100223, end: 20100520
  2. AVASTIN [Suspect]
     Dosage: ON THE FORM FREQUENCY REPORTED AS 1/1 DAY.
     Route: 041
     Dates: start: 20100707, end: 20100707
  3. CARBOPLATIN [Suspect]
     Indication: LUNG ADENOCARCINOMA
     Route: 041
     Dates: start: 20100223, end: 20100520
  4. PACLITAXEL [Suspect]
     Indication: LUNG ADENOCARCINOMA
     Route: 041
     Dates: start: 20100223, end: 20100520
  5. MAGLAX [Concomitant]
     Route: 050
     Dates: start: 20100216, end: 20100708
  6. PURSENNID [Concomitant]
     Route: 048
     Dates: start: 20100217, end: 20100708
  7. GASCON [Concomitant]
     Dosage: DRUG: GASCON(DIMETHICONE)
     Route: 048
     Dates: start: 20100219, end: 20100708
  8. LECICARBON [Concomitant]
     Dosage: DOSE FORM:SUPPOSITORIAE RECTALE, DRUG:LECICARBON(SODIUM BICARBONATE_ANHYDROUS MONOBASIC SODIUM.
     Route: 054
     Dates: start: 20100225, end: 20100708
  9. BLOPRESS [Concomitant]
     Dosage: DRUG:BLOPRESS(CANDESARTAN CILEXETIL).
     Route: 048
     Dates: start: 20100326, end: 20100708
  10. SEPAMIT [Concomitant]
     Dosage: DRUG:SEPAMIT-R(NIFEDIPINE).
     Route: 048
     Dates: start: 20100427, end: 20100708

REACTIONS (5)
  - INSOMNIA [None]
  - INTERSTITIAL LUNG DISEASE [None]
  - NEUTROPHIL COUNT DECREASED [None]
  - PAIN [None]
  - PNEUMONIA [None]
